APPROVED DRUG PRODUCT: ABELCET
Active Ingredient: AMPHOTERICIN B
Strength: 5MG/ML
Dosage Form/Route: INJECTABLE, LIPID COMPLEX;INJECTION
Application: N050724 | Product #001
Applicant: LEADIANT BIOSCIENCES INC
Approved: Nov 20, 1995 | RLD: Yes | RS: No | Type: DISCN